FAERS Safety Report 5752672-7 (Version None)
Quarter: 2008Q2

REPORT INFORMATION
  Report Type: 
  Country: None (occurrence: None)
  Receive Date: 20080529
  Receipt Date: 20080520
  Transmission Date: 20081010
  Serious: Yes (Hospitalization)
  Sender: FDA-Public Use
  Company Number: JP-SANOFI-SYNTHELABO-A01200805615

PATIENT
  Sex: Male
  Weight: 55 kg

DRUGS (7)
  1. NEO-MINOPHAGEN C [Concomitant]
     Indication: PREMEDICATION
     Route: 041
     Dates: start: 20080324, end: 20080407
  2. NASEA [Concomitant]
     Indication: PREMEDICATION
     Route: 041
     Dates: start: 20071001, end: 20080407
  3. DECADRON [Concomitant]
     Indication: PREMEDICATION
     Route: 041
     Dates: start: 20071001, end: 20080407
  4. ELPLAT [Suspect]
     Indication: LARGE INTESTINE CARCINOMA
     Dosage: 135.2 MG/BODY=85 MG/M2
     Route: 041
     Dates: start: 20080407, end: 20080407
  5. ISOVORIN [Concomitant]
     Route: 041
     Dates: start: 20080407, end: 20080407
  6. FLUOROURACIL [Suspect]
     Route: 040
     Dates: start: 20080407, end: 20080407
  7. FLUOROURACIL [Suspect]
     Route: 041
     Dates: start: 20080324, end: 20080325

REACTIONS (1)
  - SHOCK [None]
